FAERS Safety Report 13284146 (Version 17)
Quarter: 2018Q2

REPORT INFORMATION
  Report Type: Report from Study
  Country: CA (occurrence: CA)
  Receive Date: 20170301
  Receipt Date: 20180605
  Transmission Date: 20180711
  Serious: Yes (Other)
  Sender: FDA-Public Use
  Company Number: CA-SA-2016SA180476

PATIENT
  Age: 36 Year
  Sex: Female

DRUGS (7)
  1. REACTINE [CETIRIZINE HYDROCHLORIDE] [Concomitant]
     Active Substance: CETIRIZINE HYDROCHLORIDE
     Indication: PREMEDICATION
     Dosage: 5 MG,UNK
     Route: 048
     Dates: start: 20160926, end: 20161004
  2. ZANTAC [Concomitant]
     Active Substance: RANITIDINE HYDROCHLORIDE
     Indication: PREMEDICATION
     Dosage: 150 MG,UNK
     Route: 048
     Dates: start: 20160926, end: 20161004
  3. ALEMTUZUMAB [Suspect]
     Active Substance: ALEMTUZUMAB
     Indication: RELAPSING-REMITTING MULTIPLE SCLEROSIS
     Dosage: 12 MG,QD
     Route: 041
     Dates: start: 20160926, end: 20160928
  4. ACETAMINOPHEN. [Concomitant]
     Active Substance: ACETAMINOPHEN
     Indication: PREMEDICATION
     Dosage: UNK UNK,PRN
     Route: 048
     Dates: start: 20160926
  5. ACICLOVIR [Concomitant]
     Active Substance: ACYCLOVIR
     Indication: PREMEDICATION
     Dosage: 200 MG,UNK
     Route: 048
     Dates: start: 20160926, end: 20161031
  6. METHYLPREDNISOLONE. [Concomitant]
     Active Substance: METHYLPREDNISOLONE
     Indication: PREMEDICATION
     Dosage: 1 G,UNK
     Route: 042
     Dates: start: 20160926, end: 20161004
  7. ALEMTUZUMAB [Suspect]
     Active Substance: ALEMTUZUMAB
     Dosage: 12 MG,QD
     Route: 041
     Dates: start: 20161003, end: 20161004

REACTIONS (102)
  - Musculoskeletal stiffness [Not Recovered/Not Resolved]
  - Dysuria [Recovered/Resolved]
  - Urine abnormality [Not Recovered/Not Resolved]
  - Gait disturbance [Not Recovered/Not Resolved]
  - Malaise [Not Recovered/Not Resolved]
  - Headache [Not Recovered/Not Resolved]
  - Chest discomfort [Recovered/Resolved]
  - Pyrexia [Recovered/Resolved]
  - Chills [Not Recovered/Not Resolved]
  - Dizziness [Not Recovered/Not Resolved]
  - Migraine [Not Recovered/Not Resolved]
  - White blood cell count decreased [Recovered/Resolved]
  - Vitreous floaters [Not Recovered/Not Resolved]
  - Vitamin D decreased [Not Recovered/Not Resolved]
  - Dyspepsia [Recovered/Resolved]
  - Pain in extremity [Recovered/Resolved]
  - Throat irritation [Recovering/Resolving]
  - Abdominal discomfort [Not Recovered/Not Resolved]
  - Feeling cold [Recovered/Resolved]
  - Insomnia [Not Recovered/Not Resolved]
  - Bacterial test [Unknown]
  - Dysmenorrhoea [Not Recovered/Not Resolved]
  - Breast inflammation [Recovering/Resolving]
  - Discomfort [Recovered/Resolved]
  - Varicose vein [Not Recovered/Not Resolved]
  - Urine analysis abnormal [Not Recovered/Not Resolved]
  - Burning sensation [Not Recovered/Not Resolved]
  - Seasonal allergy [Not Recovered/Not Resolved]
  - Decreased appetite [Not Recovered/Not Resolved]
  - Back pain [Not Recovered/Not Resolved]
  - Hyperhidrosis [Recovered/Resolved]
  - Initial insomnia [Not Recovered/Not Resolved]
  - Abdominal pain upper [Recovered/Resolved]
  - Abdominal pain [Not Recovered/Not Resolved]
  - Ecchymosis [Not Recovered/Not Resolved]
  - Chest pain [Not Recovered/Not Resolved]
  - Blood urine present [Recovered/Resolved]
  - Feeling abnormal [Not Recovered/Not Resolved]
  - Sensory loss [Not Recovered/Not Resolved]
  - Hyperacusis [Not Recovered/Not Resolved]
  - Red cell distribution width increased [Recovered/Resolved]
  - Protein urine present [Recovered/Resolved]
  - Sinusitis [Not Recovered/Not Resolved]
  - Neutropenia [Recovered/Resolved]
  - Vision blurred [Not Recovered/Not Resolved]
  - Tremor [Recovered/Resolved]
  - Pruritus [Not Recovered/Not Resolved]
  - Nightmare [Not Recovered/Not Resolved]
  - Mood altered [Not Recovered/Not Resolved]
  - Asthenia [Recovered/Resolved]
  - Feeling hot [Not Recovered/Not Resolved]
  - Pruritus [Not Recovered/Not Resolved]
  - Blood pressure decreased [Not Recovered/Not Resolved]
  - Generalised erythema [Not Recovered/Not Resolved]
  - Hypoaesthesia [Not Recovered/Not Resolved]
  - Visual impairment [Not Recovered/Not Resolved]
  - Anxiety [Not Recovered/Not Resolved]
  - Menstruation irregular [Not Recovered/Not Resolved]
  - Menorrhagia [Unknown]
  - Peripheral swelling [Not Recovered/Not Resolved]
  - Paraesthesia oral [Not Recovered/Not Resolved]
  - Poor quality sleep [Not Recovered/Not Resolved]
  - Swelling [Recovered/Resolved]
  - Weight decreased [Not Recovered/Not Resolved]
  - Rash [Recovered/Resolved]
  - Sensory disturbance [Not Recovered/Not Resolved]
  - Urine ketone body present [Recovered/Resolved]
  - Nasopharyngitis [Recovered/Resolved]
  - Hot flush [Recovered/Resolved]
  - Pain in extremity [Not Recovered/Not Resolved]
  - Paraesthesia [Not Recovered/Not Resolved]
  - Palpitations [Not Recovered/Not Resolved]
  - Muscle spasms [Not Recovered/Not Resolved]
  - Hyperhidrosis [Not Recovered/Not Resolved]
  - Nausea [Not Recovered/Not Resolved]
  - Erythema [Recovering/Resolving]
  - Dyspnoea [Recovering/Resolving]
  - Fatigue [Not Recovered/Not Resolved]
  - Lymphocyte count decreased [Not Recovered/Not Resolved]
  - Visual impairment [Not Recovered/Not Resolved]
  - Muscle tightness [Not Recovered/Not Resolved]
  - Infusion site pain [Recovered/Resolved]
  - Red blood cells urine positive [Unknown]
  - Sinonasal obstruction [Not Recovered/Not Resolved]
  - Acne [Recovering/Resolving]
  - Dyspepsia [Recovered/Resolved]
  - Eye irritation [Not Recovered/Not Resolved]
  - Peripheral coldness [Not Recovered/Not Resolved]
  - Burning sensation [Not Recovered/Not Resolved]
  - Hypoacusis [Not Recovered/Not Resolved]
  - Ill-defined disorder [Not Recovered/Not Resolved]
  - Photophobia [Not Recovered/Not Resolved]
  - Specific gravity urine increased [Recovered/Resolved]
  - Crystal urine present [Unknown]
  - Dyspnoea [Not Recovered/Not Resolved]
  - Gastrointestinal disorder [Not Recovered/Not Resolved]
  - Rhinorrhoea [Recovered/Resolved]
  - Pain [Recovering/Resolving]
  - Tachycardia [Recovered/Resolved]
  - Epistaxis [Not Recovered/Not Resolved]
  - Platelet count increased [Recovered/Resolved]
  - Nail disorder [Not Recovered/Not Resolved]

NARRATIVE: CASE EVENT DATE: 2016
